FAERS Safety Report 19961271 (Version 2)
Quarter: 2021Q4

REPORT INFORMATION
  Report Type: Spontaneous
  Country: US (occurrence: US)
  Receive Date: 20211017
  Receipt Date: 20211020
  Transmission Date: 20220303
  Serious: No
  Sender: FDA-Public Use
  Company Number: US-TEVA-2021-US-1963165

PATIENT
  Age: 73 Year
  Sex: Male
  Weight: 86.1 kg

DRUGS (10)
  1. AUSTEDO [Suspect]
     Active Substance: DEUTETRABENAZINE
     Indication: Huntington^s disease
     Route: 065
     Dates: start: 2019
  2. AUSTEDO [Suspect]
     Active Substance: DEUTETRABENAZINE
     Indication: Dyskinesia
     Dosage: 6 MILLIGRAM DAILY;
     Route: 065
     Dates: start: 20210903, end: 20211002
  3. RINVOQ [Concomitant]
     Active Substance: UPADACITINIB
     Indication: Rheumatoid arthritis
  4. PLAQUENIL [Concomitant]
     Active Substance: HYDROXYCHLOROQUINE SULFATE
  5. DULOXETINE [Concomitant]
     Active Substance: DULOXETINE
  6. BACTRIM DS [Concomitant]
     Active Substance: SULFAMETHOXAZOLE\TRIMETHOPRIM
  7. VITAMIN D [Concomitant]
     Active Substance: VITAMIN D NOS
  8. RAPAFLO [Concomitant]
     Active Substance: SILODOSIN
  9. GABAPENTIN [Concomitant]
     Active Substance: GABAPENTIN
     Indication: Neuralgia
  10. LOSARTAN [Concomitant]
     Active Substance: LOSARTAN
     Indication: Blood pressure abnormal

REACTIONS (12)
  - Colour blindness [Unknown]
  - Heart rate irregular [Unknown]
  - Feeling abnormal [Unknown]
  - Feeling hot [Recovered/Resolved]
  - Mood swings [Unknown]
  - Vision blurred [Recovering/Resolving]
  - Dizziness [Recovered/Resolved]
  - Mydriasis [Recovered/Resolved]
  - Hypotension [Recovered/Resolved]
  - Dyskinesia [Not Recovered/Not Resolved]
  - Drug ineffective [Unknown]
  - Heart rate increased [Unknown]

NARRATIVE: CASE EVENT DATE: 20190101
